FAERS Safety Report 16396856 (Version 2)
Quarter: 2019Q2

REPORT INFORMATION
  Report Type: Spontaneous
  Country: JP (occurrence: JP)
  Receive Date: 20190606
  Receipt Date: 20190607
  Transmission Date: 20190711
  Serious: Yes (Other)
  Sender: FDA-Public Use
  Company Number: JP-ROCHE-2330771

PATIENT
  Age: 65 Year
  Sex: Female

DRUGS (1)
  1. ACTEMRA [Suspect]
     Active Substance: TOCILIZUMAB
     Indication: TAKAYASU^S ARTERITIS
     Dosage: DOSAGE IS UNCERTAIN.
     Route: 065

REACTIONS (3)
  - Coagulation factor XIII level decreased [Unknown]
  - Lung adenocarcinoma [Unknown]
  - Chylothorax [Recovering/Resolving]

NARRATIVE: CASE EVENT DATE: 201806
